FAERS Safety Report 20257726 (Version 3)
Quarter: 2022Q3

REPORT INFORMATION
  Report Type: Report from Study
  Country: US (occurrence: US)
  Receive Date: 20211230
  Receipt Date: 20220726
  Transmission Date: 20221026
  Serious: Yes (Hospitalization)
  Sender: FDA-Public Use
  Company Number: US-BoehringerIngelheim-2021-BI-145367

PATIENT
  Age: 80 Year
  Sex: Female

DRUGS (1)
  1. OFEV [Suspect]
     Active Substance: NINTEDANIB
     Indication: Interstitial lung disease
     Route: 048
     Dates: start: 20211220, end: 20211222

REACTIONS (9)
  - Chest pain [Unknown]
  - Painful respiration [Unknown]
  - Pyrexia [Unknown]
  - White blood cell count increased [Unknown]
  - Chest X-ray abnormal [Unknown]
  - Breath sounds abnormal [Not Recovered/Not Resolved]
  - Gastrointestinal disorder [Unknown]
  - Diarrhoea [Unknown]
  - Nightmare [Unknown]

NARRATIVE: CASE EVENT DATE: 20211222
